FAERS Safety Report 5700980-8 (Version None)
Quarter: 2008Q2

REPORT INFORMATION
  Report Type: 
  Country: None (occurrence: None)
  Receive Date: 20080410
  Receipt Date: 20080324
  Transmission Date: 20081010
  Serious: Yes (Other)
  Sender: FDA-Public Use
  Company Number: US-JNJFOC-20071200421

PATIENT
  Sex: Female

DRUGS (2)
  1. ORTHO EVRA [Suspect]
     Indication: CONTRACEPTION
     Route: 062
  2. ADVIL [Suspect]
     Indication: NASOPHARYNGITIS

REACTIONS (3)
  - CONVULSION [None]
  - DEEP VEIN THROMBOSIS [None]
  - PARAESTHESIA [None]
